FAERS Safety Report 4763224-X (Version None)
Quarter: 2005Q3

REPORT INFORMATION
  Report Type: 
  Country: None (occurrence: None)
  Receive Date: 20050902
  Receipt Date: 20050823
  Transmission Date: 20060218
  Serious: Yes (Life-Threatening, Other)
  Sender: FDA-Public Use
  Company Number: HQWYE114519APR05

PATIENT
  Age: 53 Year
  Sex: Female

DRUGS (4)
  1. EFFEXOR XR [Suspect]
     Indication: BIPOLAR DISORDER
     Dosage: SEE IMAGE
     Route: 048
     Dates: start: 20040719, end: 20050401
  2. EFFEXOR XR [Suspect]
     Indication: BIPOLAR DISORDER
     Dosage: SEE IMAGE
     Route: 048
     Dates: start: 20040401, end: 20050508
  3. LAMICTAL [Concomitant]
  4. TRAZODONE HCL [Concomitant]

REACTIONS (10)
  - ANGER [None]
  - CONFUSIONAL STATE [None]
  - CRYING [None]
  - DRUG WITHDRAWAL SYNDROME [None]
  - HYPOAESTHESIA [None]
  - IRRITABILITY [None]
  - NAUSEA [None]
  - NONSPECIFIC REACTION [None]
  - SUICIDAL IDEATION [None]
  - TEARFULNESS [None]
